APPROVED DRUG PRODUCT: DICLOFENAC SODIUM
Active Ingredient: DICLOFENAC SODIUM
Strength: 100MG
Dosage Form/Route: TABLET, EXTENDED RELEASE;ORAL
Application: A216275 | Product #001 | TE Code: AB
Applicant: NOVAST LABORATORIES LTD
Approved: Sep 23, 2022 | RLD: No | RS: No | Type: RX